FAERS Safety Report 10011492 (Version 2)
Quarter: 2014Q2

REPORT INFORMATION
  Report Type: Spontaneous
  Country: CN (occurrence: CN)
  Receive Date: 20140314
  Receipt Date: 20140414
  Transmission Date: 20141212
  Serious: Yes (Hospitalization)
  Sender: FDA-Public Use
  Company Number: CN-ROCHE-1360035

PATIENT
  Age: 56 Year
  Sex: Female

DRUGS (5)
  1. BEVACIZUMAB [Suspect]
     Indication: RECTAL CANCER
     Route: 042
  2. IRINOTECAN [Suspect]
     Indication: RECTAL CANCER
     Route: 042
  3. TETRAHYDROFOLATE [Suspect]
     Indication: RECTAL CANCER
     Dosage: 0.3
     Route: 042
  4. 5-FU [Suspect]
     Indication: RECTAL CANCER
     Dosage: FOR 1 DAY
     Route: 042
  5. 5-FU [Suspect]
     Dosage: CONTINUOUS INTRAVENOUS DRIP FOR 46 HOURS
     Route: 042

REACTIONS (2)
  - Coma [Recovered/Resolved]
  - Posterior reversible encephalopathy syndrome [Recovered/Resolved]
